FAERS Safety Report 4583784-1 (Version None)
Quarter: 2005Q1

REPORT INFORMATION
  Report Type: 
  Country: None (occurrence: None)
  Receive Date: 20050211
  Receipt Date: 20050203
  Transmission Date: 20050727
  Serious: Yes (Hospitalization, Other)
  Sender: FDA-Public Use
  Company Number: 2005-00103

PATIENT
  Age: 67 Year
  Sex: Male
  Weight: 81.6 kg

DRUGS (1)
  1. OXYTROL [Suspect]
     Indication: PROSTATE CANCER
     Dosage: SEE IMAGE
     Route: 062

REACTIONS (6)
  - DIZZINESS [None]
  - INTENTIONAL MISUSE [None]
  - MEDICATION ERROR [None]
  - OFF LABEL USE [None]
  - OVERDOSE [None]
  - SELF-MEDICATION [None]
